FAERS Safety Report 8520716-5 (Version None)
Quarter: 2012Q3

REPORT INFORMATION
  Report Type: 
  Country: None (occurrence: None)
  Receive Date: 20120719
  Receipt Date: 20120411
  Transmission Date: 20120928
  Serious: No
  Sender: FDA-Public Use
  Company Number: US-BRISTOL-MYERS SQUIBB COMPANY-16515439

PATIENT
  Sex: Female

DRUGS (1)
  1. NULOJIX [Suspect]
     Dosage: NULOJIX INFUSION NO OF TREATMENTS: 6

REACTIONS (1)
  - RASH PAPULAR [None]
